FAERS Safety Report 5812320-4 (Version None)
Quarter: 2008Q3

REPORT INFORMATION
  Report Type: 
  Country: None (occurrence: None)
  Receive Date: 20080714
  Receipt Date: 20080704
  Transmission Date: 20090109
  Serious: Yes (Other)
  Sender: FDA-Public Use
  Company Number: 2008SP013642

PATIENT
  Age: 63 Year
  Sex: Male

DRUGS (3)
  1. PEG-INTRON [Suspect]
     Indication: HEPATITIS C
     Dosage: SC
     Route: 058
     Dates: start: 20080121
  2. RIBAVIRIN [Suspect]
     Indication: HEPATITIS C
     Dosage: PO
     Route: 048
     Dates: start: 20080121
  3. INSULIN (CON.) [Concomitant]

REACTIONS (8)
  - BLOOD GLUCOSE DECREASED [None]
  - DEHYDRATION [None]
  - FALL [None]
  - HAEMOGLOBIN DECREASED [None]
  - MENTAL DISORDER [None]
  - MOVEMENT DISORDER [None]
  - RED BLOOD CELL COUNT DECREASED [None]
  - WHITE BLOOD CELL COUNT DECREASED [None]
